FAERS Safety Report 8573058-6 (Version None)
Quarter: 2012Q3

REPORT INFORMATION
  Report Type: 
  Country: None (occurrence: None)
  Receive Date: 20120806
  Receipt Date: 20120725
  Transmission Date: 20120928
  Serious: Yes (Death)
  Sender: FDA-Public Use
  Company Number: JP-ROCHE-1049626

PATIENT
  Sex: Female
  Weight: 45 kg

DRUGS (15)
  1. PREDNISOLONE [Concomitant]
     Indication: RHEUMATOID ARTHRITIS
     Route: 048
  2. KETOPROFEN [Concomitant]
     Route: 061
     Dates: start: 20080908, end: 20120301
  3. ACTEMRA [Suspect]
     Indication: RHEUMATOID ARTHRITIS
     Dosage: 400-440MG
     Route: 041
     Dates: start: 20080714, end: 20120130
  4. MEILAX [Concomitant]
     Route: 048
  5. ZOLPIDEM [Concomitant]
     Indication: INSOMNIA
     Route: 048
     Dates: start: 20100405, end: 20120301
  6. SENNOSIDE [Concomitant]
     Indication: CONSTIPATION
     Route: 048
     Dates: start: 20081031, end: 20081128
  7. COMELIAN [Concomitant]
     Dosage: DOSAGE IS UNCERTAIN.
     Route: 048
  8. PREDNISOLONE [Concomitant]
     Dosage: UNCERTAIN DOSAGE (LESS THAN 5MG)
     Route: 048
     Dates: end: 20090801
  9. UREPEARL [Concomitant]
     Indication: DRY SKIN
     Route: 061
     Dates: start: 20111121, end: 20120301
  10. PAXIL [Concomitant]
     Route: 048
  11. TIZANIDINE HYDROCHLORIDE [Concomitant]
     Indication: MUSCLE TWITCHING
     Route: 048
     Dates: start: 20050202, end: 20120301
  12. OMEPRAZOLE [Concomitant]
     Route: 048
  13. GASMOTIN [Concomitant]
     Route: 048
  14. ALENDRONATE SODIUM [Concomitant]
     Indication: PROPHYLAXIS
     Route: 048
     Dates: end: 20120301
  15. KETOPROFEN [Concomitant]
     Indication: RHEUMATOID ARTHRITIS
     Route: 061

REACTIONS (5)
  - LOSS OF CONSCIOUSNESS [None]
  - GASTRIC ULCER [None]
  - VOMITING [None]
  - HYPONATRAEMIA [None]
  - CONVULSION [None]
